FAERS Safety Report 7637104-6 (Version None)
Quarter: 2011Q3

REPORT INFORMATION
  Report Type: 
  Country: None (occurrence: None)
  Receive Date: 20110722
  Receipt Date: 20110722
  Transmission Date: 20111222
  Serious: Yes (Life-Threatening)
  Sender: FDA-Public Use
  Company Number: None

PATIENT
  Sex: Female
  Weight: 72.5755 kg

DRUGS (1)
  1. CLINDAMYCIN HCL [Suspect]
     Indication: INFECTION
     Dosage: 1 CAPSULE ONCE
     Dates: start: 20110702

REACTIONS (3)
  - RESPIRATORY RATE INCREASED [None]
  - THROAT IRRITATION [None]
  - PHARYNGEAL OEDEMA [None]
